FAERS Safety Report 6575196-6 (Version None)
Quarter: 2010Q1

REPORT INFORMATION
  Report Type: 
  Country: None (occurrence: None)
  Receive Date: 20100209
  Receipt Date: 20100202
  Transmission Date: 20100710
  Serious: Yes (Hospitalization, Other)
  Sender: FDA-Public Use
  Company Number: IT-BAYER-201014421GPV

PATIENT
  Age: 68 Year
  Sex: Male

DRUGS (12)
  1. CIPROXIN [Suspect]
     Indication: HYPERPYREXIA
     Dosage: UNIT DOSE: 500 MG
     Route: 048
     Dates: start: 20091217, end: 20091220
  2. FUROSEMIDE [Concomitant]
     Route: 048
  3. NEBIVOLOL [Concomitant]
     Route: 048
  4. VALSARTAN [Concomitant]
     Route: 048
  5. ACETYLSALICYLIC ACID [Concomitant]
     Route: 048
  6. AMLODIPINE [Concomitant]
  7. RAMIPRIL [Concomitant]
     Route: 048
  8. DOXAZOSIN MESYLATE [Concomitant]
     Route: 048
  9. METFORMIN HCL [Concomitant]
     Route: 048
  10. SIMVASTATIN [Concomitant]
     Route: 048
  11. CLOBAZAM [Concomitant]
     Route: 048
  12. HUMULIN R [Concomitant]
     Route: 058

REACTIONS (3)
  - AGITATION [None]
  - EPILEPSY [None]
  - HEMIPARESIS [None]
